FAERS Safety Report 9409264 (Version 2)
Quarter: 2013Q3

REPORT INFORMATION
  Report Type: Spontaneous
  Country: US (occurrence: US)
  Receive Date: 20130719
  Receipt Date: 20130731
  Transmission Date: 20140515
  Serious: Yes (Hospitalization)
  Sender: FDA-Public Use
  Company Number: US-PFIZER INC-2013209638

PATIENT
  Age: 67 Year
  Sex: Female

DRUGS (9)
  1. SUTENT [Suspect]
     Indication: RENAL CANCER
     Dosage: 50 MG, UNK
     Dates: start: 20130703
  2. METOPROLOL TARTRATE [Concomitant]
     Dosage: UNK
  3. NORPACE [Concomitant]
     Dosage: UNK
  4. TYLENOL [Concomitant]
     Dosage: UNK
  5. ATORVASTATIN CALCIUM [Concomitant]
     Dosage: UNK
  6. DISOPYRAMIDE PHOSPHATE [Concomitant]
     Dosage: UNK
  7. LORATADINE [Concomitant]
     Dosage: UNK
  8. PRAMIPEXOLE DIHYDROCHLORIDE [Concomitant]
     Dosage: UNK
  9. TRAMADOL HYDROCHLORIDE [Concomitant]
     Dosage: UNK

REACTIONS (2)
  - Dehydration [Unknown]
  - Nausea [Unknown]
